FAERS Safety Report 7649033-2 (Version None)
Quarter: 2011Q3

REPORT INFORMATION
  Report Type: 
  Country: None (occurrence: None)
  Receive Date: 20110802
  Receipt Date: 20110726
  Transmission Date: 20111222
  Serious: Yes (Other)
  Sender: FDA-Public Use
  Company Number: US-GENZYME-THYM-1002650

PATIENT
  Age: 50 Year
  Sex: Female

DRUGS (5)
  1. IMMUNE GLOBULIN NOS [Concomitant]
     Dosage: 200 MG/KG, UNK
     Route: 042
  2. RITUXIMAB [Concomitant]
     Indication: PRODUCT USED FOR UNKNOWN INDICATION
     Dosage: 375 MG/M2, UNK
     Route: 065
  3. THYMOGLOBULIN [Suspect]
     Indication: KIDNEY TRANSPLANT REJECTION
     Route: 042
  4. THYMOGLOBULIN [Suspect]
     Indication: PROPHYLAXIS AGAINST TRANSPLANT REJECTION
     Dosage: 5 MG/KG, UNK
     Route: 042
  5. IMMUNE GLOBULIN NOS [Concomitant]
     Indication: PRODUCT USED FOR UNKNOWN INDICATION
     Dosage: 2000 MG/KG, UNK
     Route: 042

REACTIONS (2)
  - KIDNEY TRANSPLANT REJECTION [None]
  - TRANSPLANT REJECTION [None]
